FAERS Safety Report 7416870-9 (Version None)
Quarter: 2011Q2

REPORT INFORMATION
  Report Type: 
  Country: None (occurrence: None)
  Receive Date: 20110408
  Receipt Date: 20110105
  Transmission Date: 20111010
  Serious: Yes (Death, Hospitalization)
  Sender: FDA-Public Use
  Company Number: 111103

PATIENT
  Age: 72 Year
  Sex: Female
  Weight: 18.1439 kg

DRUGS (1)
  1. PROCHLORPERAZINE EDISYLATE INJ [Suspect]

REACTIONS (8)
  - NAUSEA [None]
  - DEHYDRATION [None]
  - FEBRILE NEUTROPENIA [None]
  - VOMITING [None]
  - PLEURAL EFFUSION [None]
  - NON-SMALL CELL LUNG CANCER [None]
  - URINARY RETENTION [None]
  - DISEASE PROGRESSION [None]
